FAERS Safety Report 17965413 (Version 1)
Quarter: 2020Q2

REPORT INFORMATION
  Report Type: Report from Study
  Country: AR (occurrence: AR)
  Receive Date: 20200630
  Receipt Date: 20200630
  Transmission Date: 20200714
  Serious: Yes (Other)
  Sender: FDA-Public Use
  Company Number: NVSC2020AR183778

PATIENT
  Sex: Female

DRUGS (1)
  1. DIOVAN [Suspect]
     Active Substance: VALSARTAN
     Indication: HYPERTENSION
     Dosage: 160 MG, QD (IN THE MORNING, STARTED FROM 8 YEARS APPROXIMATELY)
     Route: 065

REACTIONS (2)
  - Diabetes mellitus [Recovered/Resolved]
  - Kidney infection [Recovered/Resolved]
